FAERS Safety Report 19372500 (Version 1)
Quarter: 2021Q2

REPORT INFORMATION
  Report Type: Spontaneous
  Country: US (occurrence: US)
  Receive Date: 20210603
  Receipt Date: 20210603
  Transmission Date: 20210717
  Serious: No
  Sender: FDA-Public Use
  Company Number: None

PATIENT
  Age: 44 Year
  Sex: Male
  Weight: 101 kg

DRUGS (1)
  1. CASIRIVIMAB/IMDEVIMAB (EUA) (CASIRIVIMAB 1200MG/IMDEVIMAB 1200MG (EUA)) [Suspect]
     Active Substance: CASIRIVIMAB\IMDEVIMAB
     Indication: COVID-19
     Dosage: ?          OTHER ROUTE:IV?
     Dates: start: 20210124, end: 20210124

REACTIONS (8)
  - Dizziness [None]
  - Heart rate increased [None]
  - Vertigo [None]
  - Body temperature increased [None]
  - Respiratory rate increased [None]
  - Blood pressure increased [None]
  - Oxygen saturation decreased [None]
  - Pneumonia [None]

NARRATIVE: CASE EVENT DATE: 20210124
